FAERS Safety Report 9240672 (Version 1)
Quarter: 2013Q1

REPORT INFORMATION
  Report Type: Spontaneous
  Country: US (occurrence: None)
  Receive Date: 20121120
  Receipt Date: 20121120
  Transmission Date: 20140127
  Serious: No
  Sender: FDA-Public Use
  Company Number: 1000038822

PATIENT
  Age: 41 Year
  Sex: Female

DRUGS (3)
  1. VIIBRYD [Suspect]
     Indication: DEPRESSION
     Dosage: 10 MG (10 MG, 1 IN 1 D), ORAL
     Route: 048
     Dates: start: 20120806, end: 20120812
  2. VIIBRYD [Suspect]
     Indication: DEPRESSION
     Dosage: 40 MG, (40 MG, 1 IN 1 D), ORAL
     Route: 048
     Dates: start: 20120820, end: 20120826
  3. ACYCLOVIR (ACYCLOVIR) (ACYCLOVIR) [Concomitant]
     Dosage: 400 MG (400 MG, 1 IN 1 D)

REACTIONS (3)
  - Abnormal dreams [None]
  - Feeling abnormal [None]
  - Drug effect increased [None]
